FAERS Safety Report 5122637-7 (Version None)
Quarter: 2006Q4

REPORT INFORMATION
  Report Type: 
  Country: None (occurrence: None)
  Receive Date: 20061004
  Receipt Date: 20060928
  Transmission Date: 20070319
  Serious: Yes (Hospitalization, Other)
  Sender: FDA-Public Use
  Company Number: 148046USA

PATIENT
  Age: 89 Year
  Sex: Male

DRUGS (1)
  1. DOCUSATE [Suspect]
     Indication: CONSTIPATION
     Dosage: 200 MG (100 MG, 2 IN 1 D), ORAL
     Route: 048

REACTIONS (6)
  - DYSPHAGIA [None]
  - DYSPHONIA [None]
  - ODYNOPHAGIA [None]
  - PHARMACEUTICAL PRODUCT COMPLAINT [None]
  - PNEUMONIA ASPIRATION [None]
  - THROAT IRRITATION [None]
